FAERS Safety Report 8902605 (Version 2)
Quarter: 2015Q3

REPORT INFORMATION
  Report Type: Spontaneous
  Country: US (occurrence: US)
  Receive Date: 20121112
  Receipt Date: 20150721
  Transmission Date: 20151125
  Serious: Yes (Death, Other)
  Sender: FDA-Public Use
  Company Number: US-SANOFI-AVENTIS-2012SA082497

PATIENT
  Age: 78 Year
  Sex: Male

DRUGS (4)
  1. ASPIRIN. [Concomitant]
     Active Substance: ASPIRIN
  2. PLAVIX [Suspect]
     Active Substance: CLOPIDOGREL BISULFATE
     Indication: ACUTE CORONARY SYNDROME
     Dosage: 1 OR 2 TIMES PER DAY
     Route: 065
     Dates: start: 200309, end: 20110103
  3. PLAVIX [Suspect]
     Active Substance: CLOPIDOGREL BISULFATE
     Indication: STENT PLACEMENT
     Dosage: 1 OR 2 TIMES PER DAY
     Route: 065
     Dates: start: 200309, end: 20110103
  4. PLAVIX [Suspect]
     Active Substance: CLOPIDOGREL BISULFATE
     Indication: MYOCARDIAL INFARCTION
     Dosage: 1 OR 2 TIMES PER DAY
     Route: 065
     Dates: start: 200309, end: 20110103

REACTIONS (4)
  - Rectal polyp [Unknown]
  - Haemorrhage intracranial [Fatal]
  - Aortic aneurysm [Unknown]
  - Ulcer haemorrhage [Unknown]

NARRATIVE: CASE EVENT DATE: 20061002
